FAERS Safety Report 5399010-X (Version None)
Quarter: 2007Q3

REPORT INFORMATION
  Report Type: 
  Country: None (occurrence: None)
  Receive Date: 20070727
  Receipt Date: 20070719
  Transmission Date: 20080115
  Serious: Yes (Death)
  Sender: FDA-Public Use
  Company Number: CA-GENENTECH-221436

PATIENT
  Sex: Female

DRUGS (5)
  1. BEVACIZUMAB [Suspect]
     Indication: COLON CANCER
     Dosage: 458 MG, Q3W
     Route: 042
     Dates: start: 20051129
  2. CAPECITABINE [Suspect]
     Indication: COLON CANCER
     Dosage: 1650 MG, Q3W
     Route: 048
     Dates: start: 20051129
  3. OXALIPLATIN [Suspect]
     Indication: COLON CANCER
     Dosage: 209 MG, Q3W
     Route: 042
     Dates: start: 20051129
  4. ZOFRAN [Concomitant]
     Indication: DRUG USE FOR UNKNOWN INDICATION
  5. PROCHLORPERAZINE [Concomitant]
     Indication: DRUG USE FOR UNKNOWN INDICATION

REACTIONS (2)
  - GASTROINTESTINAL HAEMORRHAGE [None]
  - HAEMOPTYSIS [None]
